FAERS Safety Report 4310304-9 (Version None)
Quarter: 2004Q1

REPORT INFORMATION
  Report Type: 
  Country: None (occurrence: None)
  Receive Date: 20040301
  Receipt Date: 20040301
  Transmission Date: 20041129
  Serious: Yes (Hospitalization)
  Sender: FDA-Public Use
  Company Number: None

PATIENT
  Age: 63 Year
  Sex: Male

DRUGS (1)
  1. FENTANYL [Suspect]
     Indication: PAIN
     Dosage: 50 MCG Q 72 H TRANSDERMAL
     Route: 062
     Dates: start: 20031028, end: 20031029

REACTIONS (2)
  - NAUSEA [None]
  - VOMITING [None]
